FAERS Safety Report 17257120 (Version 3)
Quarter: 2020Q4

REPORT INFORMATION
  Report Type: Spontaneous
  Country: CA (occurrence: CA)
  Receive Date: 20200110
  Receipt Date: 20201104
  Transmission Date: 20210113
  Serious: Yes (Death, Hospitalization, Other)
  Sender: FDA-Public Use
  Company Number: CA-PFIZER INC-2020009000

PATIENT
  Age: 67 Year
  Sex: Male

DRUGS (4)
  1. LEFLUNOMIDE. [Suspect]
     Active Substance: LEFLUNOMIDE
     Indication: RHEUMATOID ARTHRITIS
     Route: 065
  2. HYDROXYCHLOROQUINE SULFATE. [Suspect]
     Active Substance: HYDROXYCHLOROQUINE SULFATE
     Indication: RHEUMATOID ARTHRITIS
     Route: 065
  3. PREDNISONE. [Suspect]
     Active Substance: PREDNISONE
     Indication: RHEUMATOID ARTHRITIS
     Route: 065
  4. METHOTREXATE SODIUM. [Suspect]
     Active Substance: METHOTREXATE SODIUM
     Indication: RHEUMATOID ARTHRITIS
     Route: 065

REACTIONS (23)
  - Depressed level of consciousness [Fatal]
  - Diarrhoea [Fatal]
  - Vomiting [Fatal]
  - Weight decreased [Fatal]
  - Nausea [Fatal]
  - Nervous system disorder [Fatal]
  - Upper gastrointestinal haemorrhage [Fatal]
  - Gastrointestinal haemorrhage [Fatal]
  - Decreased appetite [Fatal]
  - Headache [Fatal]
  - Central nervous system infection [Fatal]
  - HTLV-1 carrier [Unknown]
  - Escherichia infection [Unknown]
  - Seizure [Fatal]
  - Stress ulcer [Fatal]
  - Abdominal pain [Fatal]
  - Confusional state [Fatal]
  - Venous thrombosis [Fatal]
  - Somnolence [Fatal]
  - Disseminated strongyloidiasis [Fatal]
  - Clostridium difficile infection [Unknown]
  - Pyrexia [Fatal]
  - Bacteraemia [Unknown]

NARRATIVE: CASE EVENT DATE: 201408
